FAERS Safety Report 21005981 (Version 2)
Quarter: 2022Q3

REPORT INFORMATION
  Report Type: Spontaneous
  Country: IL (occurrence: IL)
  Receive Date: 20220624
  Receipt Date: 20220707
  Transmission Date: 20221027
  Serious: Yes (Life-Threatening)
  Sender: FDA-Public Use
  Company Number: IL-TEVA-2022-IL-2048826

PATIENT
  Age: 84 Year
  Sex: Female

DRUGS (1)
  1. PACLITAXEL [Suspect]
     Active Substance: PACLITAXEL
     Indication: Ovarian cancer
     Route: 065
     Dates: start: 20220523

REACTIONS (6)
  - Anaphylactic shock [Unknown]
  - Blood pressure decreased [Unknown]
  - Heart rate decreased [Unknown]
  - Dyspnoea [Unknown]
  - Visual impairment [Unknown]
  - Cold sweat [Unknown]

NARRATIVE: CASE EVENT DATE: 20220101
